FAERS Safety Report 9678786 (Version 2)
Quarter: 2014Q1

REPORT INFORMATION
  Report Type: Spontaneous
  Country: BG (occurrence: BG)
  Receive Date: 20131108
  Receipt Date: 20140317
  Transmission Date: 20141002
  Serious: Yes (Life-Threatening, Hospitalization, Other)
  Sender: FDA-Public Use
  Company Number: BG-ASTRAZENECA-2013SE81967

PATIENT
  Age: 46 Year
  Sex: Male

DRUGS (1)
  1. BRILIQUE [Suspect]
     Route: 048

REACTIONS (3)
  - Thrombosis in device [Recovered/Resolved]
  - Adverse event [Recovered/Resolved]
  - Drug dose omission [Unknown]
